FAERS Safety Report 13307222 (Version 2)
Quarter: 2017Q1

REPORT INFORMATION
  Report Type: Report from Study
  Country: US (occurrence: US)
  Receive Date: 20170308
  Receipt Date: 20170323
  Transmission Date: 20170428
  Serious: No
  Sender: FDA-Public Use
  Company Number: US-ASTRAZENECA-2017SE02798

PATIENT
  Sex: Male
  Weight: 111.1 kg

DRUGS (1)
  1. SYMBICORT [Suspect]
     Active Substance: BUDESONIDE\FORMOTEROL FUMARATE DIHYDRATE
     Indication: CHRONIC OBSTRUCTIVE PULMONARY DISEASE
     Dosage: 160/4.5 UG , 2 PUFFS TWICE A DAY AS NEEDED
     Route: 055

REACTIONS (5)
  - Device issue [Unknown]
  - Intentional product misuse [Unknown]
  - Cough [Unknown]
  - Drug dose omission [Unknown]
  - Overweight [Unknown]
